FAERS Safety Report 6149186-1 (Version None)
Quarter: 2009Q2

REPORT INFORMATION
  Report Type: 
  Country: None (occurrence: None)
  Receive Date: 20090407
  Receipt Date: 20090324
  Transmission Date: 20091009
  Serious: Yes (Disabling)
  Sender: FDA-Public Use
  Company Number: 230017M09GBR

PATIENT
  Age: 36 Year
  Sex: Female
  Weight: 95 kg

DRUGS (2)
  1. REBIF [Suspect]
     Dosage: 44 MCG, 3 IN 1 WEEKS, SUBCUTANEOUS
     Route: 058
  2. DEPOT INJECTION (ALL OTHER THERAPEUTIC PRODUCTS) [Concomitant]

REACTIONS (3)
  - ECZEMA [None]
  - INJECTION SITE ECZEMA [None]
  - INJECTION SITE REACTION [None]
